FAERS Safety Report 5481394-5 (Version None)
Quarter: 2007Q4

REPORT INFORMATION
  Report Type: 
  Country: None (occurrence: None)
  Receive Date: 20071005
  Receipt Date: 20071005
  Transmission Date: 20080405
  Serious: Yes (Other)
  Sender: FDA-Public Use
  Company Number: None

PATIENT
  Sex: Female
  Weight: 62.5964 kg

DRUGS (2)
  1. CHANTIX [Suspect]
     Indication: SMOKING CESSATION THERAPY
     Dosage: 0.5 MG DAILY PO ONCE/TWICE DAILY 1 MG DAILY PO TWICE DAILY
     Route: 048
     Dates: start: 20070923, end: 20070930
  2. CHANTIX [Suspect]
     Indication: SMOKING CESSATION THERAPY
     Dosage: 0.5 MG DAILY PO ONCE/TWICE DAILY 1 MG DAILY PO TWICE DAILY
     Route: 048
     Dates: start: 20071001, end: 20071003

REACTIONS (5)
  - HYPERHIDROSIS [None]
  - INSOMNIA [None]
  - MIDDLE INSOMNIA [None]
  - NAUSEA [None]
  - VISUAL ACUITY REDUCED [None]
